FAERS Safety Report 6646708-9 (Version None)
Quarter: 2010Q1

REPORT INFORMATION
  Report Type: 
  Country: None (occurrence: None)
  Receive Date: 20100317
  Receipt Date: 20100303
  Transmission Date: 20100710
  Serious: Yes (Other)
  Sender: FDA-Public Use
  Company Number: US-1180139

PATIENT
  Sex: Male
  Weight: 84.369 kg

DRUGS (16)
  1. AZOPT [Suspect]
     Indication: GLAUCOMA
     Dosage: 1 GTT TD OU, 1 GTT OU TID OPHTHALMIC
     Route: 047
     Dates: start: 20091103, end: 20091108
  2. TRAVATAN [Suspect]
     Indication: GLAUCOMA
     Dosage: 1 GTT QD OU, 1 GRR OU QHS OPHTHALMIIC
     Route: 047
     Dates: start: 20091103, end: 20091108
  3. DIOVAN [Concomitant]
  4. METOPROLOL SUCCINATE [Concomitant]
  5. AMLODIPINE [Concomitant]
  6. PREVACID [Concomitant]
  7. ASPIRIN [Concomitant]
  8. LORAZEPAM [Concomitant]
  9. PREDNISONE TAB [Concomitant]
  10. FLOMAX [Concomitant]
  11. SPIRIVA [Concomitant]
  12. BROVANA [Concomitant]
  13. ALBUTEROL [Concomitant]
  14. PROSCAR [Concomitant]
  15. ACTONEL [Concomitant]
  16. THEOPHYLLINE [Concomitant]

REACTIONS (7)
  - CHOROIDAL NEOVASCULARISATION [None]
  - DRUG HYPERSENSITIVITY [None]
  - ERYTHEMA OF EYELID [None]
  - FOREIGN BODY SENSATION IN EYES [None]
  - MACULAR OEDEMA [None]
  - VISION BLURRED [None]
  - VISUAL IMPAIRMENT [None]
